FAERS Safety Report 25676733 (Version 1)
Quarter: 2025Q3

REPORT INFORMATION
  Report Type: Spontaneous
  Country: US (occurrence: None)
  Receive Date: 20250812
  Receipt Date: 20250812
  Transmission Date: 20251021
  Serious: Yes (Hospitalization)
  Sender: FDA-CTU
  Company Number: None

PATIENT
  Age: 84 Year
  Sex: Female
  Weight: 62.46 kg

DRUGS (15)
  1. IMATINIB [Suspect]
     Active Substance: IMATINIB
     Indication: Chronic myeloid leukaemia
     Dosage: 300 MG DAILY ORAL
     Route: 048
     Dates: start: 20240925
  2. OMEPRAZOLE 40MG CAP [Concomitant]
     Dates: start: 20250715
  3. TIZANIDINE 2MG TAB [Concomitant]
     Dates: start: 20250715
  4. GABAPENTIN [Concomitant]
     Active Substance: GABAPENTIN
     Dates: start: 20250715
  5. HYDROCODONE/APAP 5/325MG TAB [Concomitant]
     Dates: start: 20250715
  6. ROSUVASTATIN 20MG TABS [Concomitant]
     Dates: start: 20250715
  7. OXYBUTYNIN 5MG TABS [Concomitant]
     Dates: start: 20250715
  8. LEVOTHYROXINE 25MCG TAB [Concomitant]
     Dates: start: 20241207
  9. ALPRAZOLAM 0.25MG TAB [Concomitant]
     Dates: start: 20241207
  10. COLESTIPOL 1GM TAB [Concomitant]
     Dates: start: 20230705
  11. ALLOPURINOL [Concomitant]
     Active Substance: ALLOPURINOL
     Dates: start: 20210406
  12. IPRATROPIUM BROMIDE 0.03% SOLUTION [Concomitant]
     Dates: start: 20210406
  13. ALBUTEROL HFA 108AERS [Concomitant]
     Dates: start: 20210406
  14. METHYLPHENIDATE 20MG TAB [Concomitant]
     Dates: start: 20210406
  15. PREDNISONE [Concomitant]
     Active Substance: PREDNISONE
     Dates: start: 20210406

REACTIONS (1)
  - Haemoglobin decreased [None]

NARRATIVE: CASE EVENT DATE: 20250812
